FAERS Safety Report 7605677 (Version 5)
Quarter: 2012Q4

REPORT INFORMATION
  Report Type: 
  Country: JP (occurrence: US)
  Receive Date: 20100924
  Receipt Date: 20120907
  Transmission Date: 20130627
  Serious: Yes (Other)
  Sender: FDA-Public Use
  Company Number: US-JNJFOC-20100607580

PATIENT
  Age: 15 None
  Sex: Male

DRUGS (1)
  1. LEVAQUIN [Suspect]
     Indication: INFECTION
     Route: 048
     Dates: start: 200807

REACTIONS (5)
  - Tendonitis [Unknown]
  - Tendon injury [Unknown]
  - Suicidal ideation [Unknown]
  - Homicidal ideation [Unknown]
  - Arthralgia [Unknown]
